FAERS Safety Report 8558736-7 (Version None)
Quarter: 2012Q3

REPORT INFORMATION
  Report Type: 
  Country: None (occurrence: None)
  Receive Date: 20120801
  Receipt Date: 20120730
  Transmission Date: 20120928
  Serious: Yes (Death, Hospitalization, Other)
  Sender: FDA-Public Use
  Company Number: GB-ROCHE-1060637

PATIENT
  Sex: Male
  Weight: 84 kg

DRUGS (1)
  1. MABTHERA [Suspect]
     Indication: RHEUMATOID ARTHRITIS
     Dosage: LAST DOSE PRIOR TO SAE 20/JAN/2011
     Dates: start: 20110106

REACTIONS (5)
  - DEATH [None]
  - ENTEROCOCCAL SEPSIS [None]
  - POLYMYALGIA RHEUMATICA [None]
  - MYOCARDIAL ISCHAEMIA [None]
  - CONGESTIVE CARDIOMYOPATHY [None]
